FAERS Safety Report 14092001 (Version 1)
Quarter: 2017Q4

REPORT INFORMATION
  Report Type: Spontaneous
  Country: US (occurrence: None)
  Receive Date: 20171013
  Receipt Date: 20171013
  Transmission Date: 20180321
  Serious: Yes (Hospitalization)
  Sender: FDA-Public Use
  Company Number: None

PATIENT
  Age: 2 Year
  Sex: Male
  Weight: 15.9 kg

DRUGS (23)
  1. GLYCOPYRROLATE. [Concomitant]
     Active Substance: GLYCOPYRROLATE
  2. BRIVARACETAM [Concomitant]
     Active Substance: BRIVARACETAM
  3. TRIAMCINOLONE [Concomitant]
     Active Substance: TRIAMCINOLONE
  4. LEVABUTEROL [Concomitant]
  5. MULTIVITAMIN [Concomitant]
     Active Substance: VITAMINS
  6. CANNABIDIOL [Suspect]
     Active Substance: CANNABIDIOL
     Indication: SEIZURE
     Dosage: 1.1 MG BID G-TUBE
     Dates: start: 20170411
  7. ACETAMINOPHEN. [Concomitant]
     Active Substance: ACETAMINOPHEN
  8. CETIRIZINE [Concomitant]
     Active Substance: CETIRIZINE HYDROCHLORIDE
  9. ALUMINUM HYDROXIDE/DIPHENHYDRAMINE/LIDOCAINE/MGOH/SIMETHICONE [Concomitant]
  10. MONTELUKAST [Concomitant]
     Active Substance: MONTELUKAST SODIUM
  11. BIFIDOBACTGERIUM-LACTOBACILLUS [Concomitant]
  12. SODIUM CHLORIDE (HYPERSAL) [Concomitant]
  13. ERYTHROMYCIN. [Concomitant]
     Active Substance: ERYTHROMYCIN
  14. MELATONIN [Concomitant]
     Active Substance: MELATONIN
  15. DIAZEPAM. [Concomitant]
     Active Substance: DIAZEPAM
  16. RISPERIDONE. [Concomitant]
     Active Substance: RISPERIDONE
  17. POLYETHYLENE GLYCOL [Concomitant]
     Active Substance: POLYETHYLENE GLYCOLS
  18. RUFINAMIDE [Concomitant]
     Active Substance: RUFINAMIDE
  19. FLUTICASONE-SALMETEROL DISK [Concomitant]
     Active Substance: FLUTICASONE PROPIONATE\SALMETEROL XINAFOATE
  20. FLUTICASONE. [Concomitant]
     Active Substance: FLUTICASONE
  21. ESOMEPRAZOLE [Concomitant]
     Active Substance: ESOMEPRAZOLE
  22. CLOBAZAM [Concomitant]
     Active Substance: CLOBAZAM
  23. CLONIDINE. [Concomitant]
     Active Substance: CLONIDINE

REACTIONS (9)
  - Vomiting [None]
  - Salivary hypersecretion [None]
  - Respiratory distress [None]
  - Device malfunction [None]
  - Gastrooesophageal reflux disease [None]
  - Atelectasis [None]
  - Aspiration [None]
  - Sleep apnoea syndrome [None]
  - Pneumonia aspiration [None]

NARRATIVE: CASE EVENT DATE: 20170523
